FAERS Safety Report 5507621-3 (Version None)
Quarter: 2007Q4

REPORT INFORMATION
  Report Type: 
  Country: None (occurrence: None)
  Receive Date: 20071106
  Receipt Date: 20071030
  Transmission Date: 20080405
  Serious: Yes (Hospitalization)
  Sender: FDA-Public Use
  Company Number: NL-ASTRAZENECA-2007AC01230

PATIENT
  Age: 29841 Day
  Sex: Male
  Weight: 59 kg

DRUGS (4)
  1. ENTOCORT EC [Suspect]
     Indication: COLITIS ULCERATIVE
     Route: 048
     Dates: start: 20050701
  2. VERAPAMIL HCL [Concomitant]
     Dates: start: 19770101
  3. ASCAL CARDIO [Concomitant]
     Dates: start: 20020101
  4. LIPITOR [Concomitant]
     Dates: start: 20030101

REACTIONS (1)
  - OSTEONECROSIS [None]
